FAERS Safety Report 6716304-3 (Version None)
Quarter: 2010Q2

REPORT INFORMATION
  Report Type: 
  Country: None (occurrence: None)
  Receive Date: 20100507
  Receipt Date: 20100423
  Transmission Date: 20101027
  Serious: Yes (Other)
  Sender: FDA-Public Use
  Company Number: PHHY2010US26414

PATIENT
  Sex: Male

DRUGS (1)
  1. ZOMETA [Suspect]
     Indication: PROSTATE CANCER
     Dosage: UNK
     Route: 042
     Dates: start: 20070101, end: 20091023

REACTIONS (5)
  - BONE DISORDER [None]
  - GINGIVAL ABSCESS [None]
  - IMPAIRED HEALING [None]
  - SPEECH DISORDER [None]
  - TOOTH DISORDER [None]
